FAERS Safety Report 19782877 (Version 1)
Quarter: 2021Q3

REPORT INFORMATION
  Report Type: Other
  Country: CA (occurrence: CA)
  Receive Date: 20210903
  Receipt Date: 20210903
  Transmission Date: 20211014
  Serious: Yes (Hospitalization, Other)
  Sender: FDA-Public Use
  Company Number: CA-CELLTRION INC.-2021CA011720

PATIENT

DRUGS (10)
  1. RITUXIMAB. [Suspect]
     Active Substance: RITUXIMAB
     Indication: PROPHYLAXIS
     Dosage: 500 MG, 1 EVERY 2 WEEKS
     Route: 042
  2. EPOETIN ALFA [Suspect]
     Active Substance: ERYTHROPOIETIN
     Indication: ANAEMIA
     Dosage: 1 EVERY 1 WEEKS
     Route: 065
  3. ERYTHROPOIETIN [Suspect]
     Active Substance: ERYTHROPOIETIN
     Indication: ANAEMIA
     Dosage: UNK
     Route: 065
  4. HYDROXYUREA. [Suspect]
     Active Substance: HYDROXYUREA
     Indication: SICKLE CELL DISEASE
     Dosage: UNK
     Route: 065
  5. IRON [Suspect]
     Active Substance: IRON
     Indication: ANAEMIA
     Dosage: UNK
     Route: 065
  6. ARANESP [Suspect]
     Active Substance: DARBEPOETIN ALFA
     Indication: ANAEMIA
     Dosage: 150 MICROGRAM, 1EVERY 1 WEEK
     Route: 065
  7. ECULIZUMAB [Concomitant]
     Active Substance: ECULIZUMAB
     Indication: PROPHYLAXIS
     Dosage: UNK
  8. METHYLPREDNISOLONE. [Suspect]
     Active Substance: METHYLPREDNISOLONE
     Indication: PROPHYLAXIS
     Dosage: 250 MILLIGRAM
     Route: 042
  9. COBAMAMIDE [Suspect]
     Active Substance: COBAMAMIDE
     Indication: VITAMIN B12 DEFICIENCY
     Dosage: UNK
     Route: 065
  10. IMMUNOGLOBULINS [IMMUNOGLOBULINS NOS] [Suspect]
     Active Substance: IMMUNE GLOBULIN NOS
     Indication: PROPHYLAXIS
     Dosage: UNK
     Route: 042

REACTIONS (10)
  - Off label use [Recovered/Resolved]
  - Off label use [Unknown]
  - Anaemia [Recovered/Resolved]
  - Uterine atony [Recovered/Resolved]
  - Acute chest syndrome [Recovered/Resolved]
  - Maternal exposure during pregnancy [Recovered/Resolved]
  - Foetal growth restriction [Recovered/Resolved]
  - Platelet count decreased [Recovered/Resolved]
  - Thrombocytopenia [Recovered/Resolved]
  - Premature delivery [Recovered/Resolved]
